FAERS Safety Report 23458637 (Version 2)
Quarter: 2024Q1

REPORT INFORMATION
  Report Type: Spontaneous
  Country: ES (occurrence: None)
  Receive Date: 20240130
  Receipt Date: 20240131
  Transmission Date: 20240410
  Serious: Yes (Hospitalization, Other)
  Sender: FDA-Public Use
  Company Number: ES-Unichem Pharmaceuticals (USA) Inc-UCM202401-000061

PATIENT
  Age: 5 Year
  Sex: Female

DRUGS (1)
  1. DIVALPROEX SODIUM [Suspect]
     Active Substance: DIVALPROEX SODIUM
     Indication: Partial seizures
     Dosage: 50 MG/KG

REACTIONS (4)
  - Cerebellar atrophy [Recovered/Resolved]
  - Epilepsy [Recovered/Resolved]
  - Cerebral atrophy [Recovered/Resolved]
  - Hyperammonaemia [Unknown]
